FAERS Safety Report 7653457-7 (Version None)
Quarter: 2011Q3

REPORT INFORMATION
  Report Type: 
  Country: None (occurrence: None)
  Receive Date: 20110803
  Receipt Date: 20110729
  Transmission Date: 20111222
  Serious: Yes (Other)
  Sender: FDA-Public Use
  Company Number: US-PFIZER INC-2011173627

PATIENT
  Sex: Female

DRUGS (2)
  1. PREMPRO [Suspect]
     Dosage: 0.65 MG, AS NEEDED
     Dates: start: 20090101
  2. PREMPRO [Suspect]
     Indication: HOT FLUSH
     Dosage: 0.65 MG, 1X/DAY
     Route: 048
     Dates: start: 19890101

REACTIONS (2)
  - BLOOD CHOLESTEROL INCREASED [None]
  - HYPERTENSION [None]
